FAERS Safety Report 15655900 (Version 5)
Quarter: 2020Q3

REPORT INFORMATION
  Report Type: Report from Study
  Country: CA (occurrence: CA)
  Receive Date: 20181126
  Receipt Date: 20200929
  Transmission Date: 20201102
  Serious: Yes (Hospitalization)
  Sender: FDA-Public Use
  Company Number: CA-GLAXOSMITHKLINE-CA2018GSK180551

PATIENT
  Sex: Female

DRUGS (3)
  1. NUCALA [Suspect]
     Active Substance: MEPOLIZUMAB
     Dosage: 100 MG, Z(MONTHLY)
     Route: 042
  2. SALBUTAMOL SULPHATE [Suspect]
     Active Substance: ALBUTEROL SULFATE
     Indication: PRODUCT USED FOR UNKNOWN INDICATION
     Dosage: UNK
  3. NUCALA [Suspect]
     Active Substance: MEPOLIZUMAB
     Indication: ASTHMA
     Dosage: 100 MG, Z
     Route: 042
     Dates: start: 20170228

REACTIONS (8)
  - Asthma [Recovering/Resolving]
  - Loss of personal independence in daily activities [Unknown]
  - Dyspnoea [Recovering/Resolving]
  - Sleep disorder due to a general medical condition [Recovered/Resolved]
  - Wheezing [Recovering/Resolving]
  - Hospitalisation [Unknown]
  - Movement disorder [Unknown]
  - Rales [Unknown]
